FAERS Safety Report 10693561 (Version 1)
Quarter: 2015Q1

REPORT INFORMATION
  Report Type: Other
  Country: GB (occurrence: GB)
  Receive Date: 20150106
  Receipt Date: 20150106
  Transmission Date: 20150721
  Serious: Yes (Other)
  Sender: FDA-Public Use
  Company Number: GB-MYLANLABS-2015M1000026

PATIENT

DRUGS (2)
  1. TOPIRAMATE. [Suspect]
     Active Substance: TOPIRAMATE
     Indication: MIGRAINE WITH AURA
     Dosage: UNK
     Route: 048
  2. ATENOLOL. [Concomitant]
     Active Substance: ATENOLOL
     Dosage: 25 MG, UNK

REACTIONS (4)
  - Neoplasm malignant [Not Recovered/Not Resolved]
  - Dysphagia [Not Recovered/Not Resolved]
  - Gastrooesophageal reflux disease [Recovered/Resolved with Sequelae]
  - Oesophageal obstruction [Not Recovered/Not Resolved]
